FAERS Safety Report 24125841 (Version 1)
Quarter: 2024Q3

REPORT INFORMATION
  Report Type: Spontaneous
  Country: HU (occurrence: HU)
  Receive Date: 20240723
  Receipt Date: 20240723
  Transmission Date: 20241017
  Serious: Yes (Hospitalization, Other)
  Sender: ELI LILLY AND CO
  Company Number: HU-Orion Corporation ORION PHARMA-TREX2024-0171

PATIENT
  Age: 39 Year
  Sex: Female

DRUGS (1)
  1. TERIPARATIDE [Suspect]
     Active Substance: TERIPARATIDE
     Indication: Product used for unknown indication
     Dosage: UNK UNK, UNKNOWN
     Route: 065
     Dates: start: 201911

REACTIONS (7)
  - Limb discomfort [Unknown]
  - Arthralgia [Unknown]
  - Phaeochromocytoma [Unknown]
  - Diarrhoea [Unknown]
  - Hypertension [Unknown]
  - Polyuria [Unknown]
  - Tachycardia [Unknown]

NARRATIVE: CASE EVENT DATE: 20191001
